FAERS Safety Report 5136706-9 (Version None)
Quarter: 2006Q4

REPORT INFORMATION
  Report Type: 
  Country: None (occurrence: None)
  Receive Date: 20061023
  Receipt Date: 20061011
  Transmission Date: 20070319
  Serious: Yes (Other)
  Sender: FDA-Public Use
  Company Number: 2006126500

PATIENT
  Sex: Male

DRUGS (2)
  1. CELEBREX [Suspect]
  2. LYRICA [Suspect]

REACTIONS (3)
  - BLOOD PRESSURE INCREASED [None]
  - HYPOAESTHESIA [None]
  - INFLUENZA LIKE ILLNESS [None]
